FAERS Safety Report 15559432 (Version 1)
Quarter: 2018Q4

REPORT INFORMATION
  Report Type: Report from Study
  Country: JP (occurrence: JP)
  Receive Date: 20181029
  Receipt Date: 20181029
  Transmission Date: 20190205
  Serious: Yes (Other)
  Sender: FDA-Public Use
  Company Number: JP-TEVA-2018-JP-968795

PATIENT
  Age: 57 Year
  Sex: Female

DRUGS (3)
  1. ZOTEPINE [Suspect]
     Active Substance: ZOTEPINE
     Indication: SCHIZOPHRENIA
     Route: 065
  2. VEGETAMINE-A [Concomitant]
     Indication: SCHIZOPHRENIA
     Dosage: CHLORPROMAZINE 25MG/PROMETHAZINE 12.5MG/PHENOBARBITAL 40MG
     Route: 065
  3. RISPERIDONE. [Suspect]
     Active Substance: RISPERIDONE
     Indication: SCHIZOPHRENIA
     Route: 065

REACTIONS (3)
  - Cyanosis [Recovering/Resolving]
  - Hypothermia [Recovered/Resolved]
  - Depressed level of consciousness [Recovering/Resolving]
